FAERS Safety Report 6186710-7 (Version None)
Quarter: 2009Q2

REPORT INFORMATION
  Report Type: 
  Country: None (occurrence: None)
  Receive Date: 20090512
  Receipt Date: 20090504
  Transmission Date: 20091009
  Serious: Yes (Hospitalization)
  Sender: FDA-Public Use
  Company Number: NZ-ASTRAZENECA-2009AP03024

PATIENT
  Age: 16358 Day
  Sex: Male

DRUGS (4)
  1. OMEPRAZOLE [Suspect]
     Route: 048
     Dates: start: 19981001, end: 19981022
  2. CLOZAPINE [Interacting]
     Route: 048
     Dates: start: 19960101, end: 19981022
  3. AMOXICILLIN [Concomitant]
     Route: 048
  4. METRONIDAZOLE [Concomitant]
     Route: 048

REACTIONS (2)
  - DRUG INTERACTION [None]
  - GRAND MAL CONVULSION [None]
